FAERS Safety Report 18575227 (Version 1)
Quarter: 2020Q4

REPORT INFORMATION
  Report Type: Report from Study
  Country: None (occurrence: BR)
  Receive Date: 20201203
  Receipt Date: 20201203
  Transmission Date: 20210114
  Serious: Yes (Disabling)
  Sender: FDA-Public Use
  Company Number: BR-ABBVIE-20K-020-3669696-00

PATIENT
  Sex: Female

DRUGS (1)
  1. HUMIRA [Suspect]
     Active Substance: ADALIMUMAB
     Indication: PSORIATIC ARTHROPATHY
     Route: 058
     Dates: start: 201908, end: 202003

REACTIONS (6)
  - Mobility decreased [Unknown]
  - Malaise [Unknown]
  - Musculoskeletal disorder [Unknown]
  - Pain [Unknown]
  - Feeding disorder [Unknown]
  - Loss of personal independence in daily activities [Unknown]
